APPROVED DRUG PRODUCT: SYMBICORT
Active Ingredient: BUDESONIDE; FORMOTEROL FUMARATE DIHYDRATE
Strength: 0.16MG/INH;0.0045MG/INH
Dosage Form/Route: AEROSOL, METERED;INHALATION
Application: N021929 | Product #002 | TE Code: AB
Applicant: ASTRAZENECA LP
Approved: Jul 21, 2006 | RLD: Yes | RS: Yes | Type: RX